FAERS Safety Report 18551309 (Version 2)
Quarter: 2020Q4

REPORT INFORMATION
  Report Type: Report from Study
  Country: BR (occurrence: BR)
  Receive Date: 20201126
  Receipt Date: 20201211
  Transmission Date: 20210114
  Serious: Yes (Other)
  Sender: FDA-Public Use
  Company Number: BR-TAKEDA-BR201929279

PATIENT
  Age: 13 Year
  Sex: Male
  Weight: 36 kg

DRUGS (6)
  1. IDURSULFASE [Suspect]
     Active Substance: IDURSULFASE
     Indication: MUCOPOLYSACCHARIDOSIS II
     Dosage: 3 DOSAGE FORM (9.0 ML (0.5 ML/KG), 1/WEEK
     Route: 042
  2. DIPYRONE [Concomitant]
     Active Substance: DIPYRONE
     Indication: HEADACHE
  3. IDURSULFASE [Suspect]
     Active Substance: IDURSULFASE
     Dosage: 3 VIALS IN ONE WEEK AND 2 UNITS IN THE FOLLOWING WEEK
     Route: 042
  4. IDURSULFASE [Suspect]
     Active Substance: IDURSULFASE
     Dosage: 2 DOSAGE FORM, UNKNOWN
     Route: 065
  5. IDURSULFASE [Suspect]
     Active Substance: IDURSULFASE
     Dosage: 3 VIALS IN ONE WEEK AND 2 UNITS IN THE FOLLOWING WEEKUNK
     Route: 042
     Dates: start: 20200407
  6. DIPYRONE [Concomitant]
     Active Substance: DIPYRONE
     Indication: PYREXIA

REACTIONS (10)
  - Headache [Unknown]
  - Swelling [Recovered/Resolved]
  - Inappropriate schedule of product administration [Unknown]
  - Pyrexia [Unknown]
  - Respiratory tract infection [Recovered/Resolved]
  - Off label use [Unknown]
  - Cough [Unknown]
  - Weight increased [Unknown]
  - Product dose omission issue [Unknown]
  - Product availability issue [Recovered/Resolved]

NARRATIVE: CASE EVENT DATE: 20201204
